FAERS Safety Report 8312062-X (Version None)
Quarter: 2012Q2

REPORT INFORMATION
  Report Type: 
  Country: None (occurrence: None)
  Receive Date: 20120425
  Receipt Date: 20110519
  Transmission Date: 20120825
  Serious: Yes (Other)
  Sender: FDA-Public Use
  Company Number: US-TEVA-2011002499

PATIENT
  Sex: Female
  Weight: 6.86 kg

DRUGS (10)
  1. TRAZODONE HCL [Concomitant]
     Dates: start: 20110401
  2. PROVIGIL [Suspect]
     Indication: FIBROMYALGIA
     Dosage: 200 MILLIGRAM;
     Route: 048
     Dates: start: 20090101, end: 20110516
  3. FUROSEMIDE [Concomitant]
  4. ENALAPRIL MALEATE [Concomitant]
  5. ZYRTEC [Concomitant]
  6. DIAZEPAM [Concomitant]
     Dates: start: 20020101
  7. OXYCODONE HCL AND ACETAMINOPHEN [Concomitant]
     Dates: start: 20010101
  8. ARTHROTEC [Concomitant]
     Dates: start: 20110201, end: 20110510
  9. CYMBALTA [Concomitant]
     Dates: start: 20050101
  10. OMEPRAZOLE [Concomitant]
     Dates: start: 19910101

REACTIONS (5)
  - HALLUCINATION [None]
  - INSOMNIA [None]
  - LISTLESS [None]
  - FATIGUE [None]
  - RESTLESSNESS [None]
